FAERS Safety Report 24944417 (Version 3)
Quarter: 2025Q1

REPORT INFORMATION
  Report Type: Report from Study
  Country: US (occurrence: US)
  Receive Date: 20250208
  Receipt Date: 20250317
  Transmission Date: 20250409
  Serious: Yes (Other)
  Sender: ABBVIE
  Company Number: US-ABBVIE-6119365

PATIENT
  Age: 71 Year
  Sex: Female
  Weight: 79.378 kg

DRUGS (2)
  1. HUMIRA [Suspect]
     Active Substance: ADALIMUMAB
     Indication: Rheumatoid arthritis
     Dosage: FORM STRENGTH: 40 MILLIGRAM
     Route: 058
     Dates: start: 20220818
  2. TUMS [Concomitant]
     Active Substance: CALCIUM CARBONATE
     Indication: Blood calcium

REACTIONS (3)
  - Parathyroid gland enlargement [Unknown]
  - Blood parathyroid hormone increased [Recovered/Resolved]
  - Blood parathyroid hormone decreased [Recovering/Resolving]

NARRATIVE: CASE EVENT DATE: 20241101
